FAERS Safety Report 22115521 (Version 4)
Quarter: 2025Q2

REPORT INFORMATION
  Report Type: Spontaneous
  Country: US (occurrence: US)
  Receive Date: 20230320
  Receipt Date: 20250529
  Transmission Date: 20250716
  Serious: No
  Sender: SANOFI AVENTIS
  Company Number: US-SA-SAC20230317000072

PATIENT
  Age: 68 Year
  Sex: Female

DRUGS (4)
  1. DUPIXENT [Suspect]
     Active Substance: DUPILUMAB
     Indication: Asthma
     Dosage: 300 MG, QOW
     Route: 058
     Dates: start: 20230201
  2. NORVASC [Concomitant]
     Active Substance: AMLODIPINE BESYLATE
  3. MOUNJARO [Concomitant]
     Active Substance: TIRZEPATIDE
  4. XELJANZ [Concomitant]
     Active Substance: TOFACITINIB CITRATE

REACTIONS (4)
  - Impaired quality of life [Recovering/Resolving]
  - Dyspnoea [Recovering/Resolving]
  - Asthma [Unknown]
  - Drug ineffective [Unknown]

NARRATIVE: CASE EVENT DATE: 20230101
